FAERS Safety Report 7867373-9 (Version None)
Quarter: 2011Q4

REPORT INFORMATION
  Report Type: 
  Country: None (occurrence: None)
  Receive Date: 20111028
  Receipt Date: 20111025
  Transmission Date: 20120403
  Serious: Yes (Death)
  Sender: FDA-Public Use
  Company Number: GB-EISAI INC-E2080-00422-SPO-GB

PATIENT
  Age: 9 Year
  Sex: Female

DRUGS (1)
  1. INOVELON [Suspect]
     Dosage: UNKNOWN
     Route: 048

REACTIONS (1)
  - SUDDEN UNEXPLAINED DEATH IN EPILEPSY [None]
